FAERS Safety Report 5935003-9 (Version None)
Quarter: 2008Q4

REPORT INFORMATION
  Report Type: 
  Country: None (occurrence: None)
  Receive Date: 20081029
  Receipt Date: 20081029
  Transmission Date: 20090506
  Serious: Yes (Other)
  Sender: FDA-Public Use
  Company Number: None

PATIENT
  Age: 56 Year
  Sex: Female
  Weight: 92.5338 kg

DRUGS (2)
  1. LISINOPRIL [Suspect]
     Indication: HYPERTENSION
     Dosage: ONCE QD O
     Dates: start: 20080101, end: 20080701
  2. ZESTORETIC [Suspect]
     Indication: HYPERTENSION
     Dosage: 10/12.5 ONCE QD O
     Dates: start: 20071201, end: 20080101

REACTIONS (3)
  - COUGH [None]
  - GASTROINTESTINAL DISORDER [None]
  - HYPERTENSION [None]
